FAERS Safety Report 6905408-8 (Version None)
Quarter: 2010Q3

REPORT INFORMATION
  Report Type: 
  Country: None (occurrence: None)
  Receive Date: 20100804
  Receipt Date: 20100701
  Transmission Date: 20110219
  Serious: No
  Sender: FDA-Public Use
  Company Number: US-BAYER-201017789BCC

PATIENT
  Age: 89 Year
  Sex: Female
  Weight: 54 kg

DRUGS (5)
  1. ALEVE (CAPLET) [Suspect]
     Indication: FOOT OPERATION
     Dosage: TOTAL DAILY DOSE: 440 MG  UNIT DOSE: 220 MG
     Route: 048
     Dates: start: 20100101, end: 20100629
  2. VITAMIN D [Concomitant]
     Route: 065
  3. LEG CRAMP RELIEF VITAMIN [Concomitant]
     Route: 065
  4. ELDERBERRY VITAMIN [Concomitant]
     Route: 065
  5. L-LISINE VITAMIN [Concomitant]
     Route: 065

REACTIONS (2)
  - NAUSEA [None]
  - THROAT IRRITATION [None]
